FAERS Safety Report 7060082-8 (Version None)
Quarter: 2010Q4

REPORT INFORMATION
  Report Type: 
  Country: None (occurrence: None)
  Receive Date: 20101025
  Receipt Date: 20101020
  Transmission Date: 20110411
  Serious: Yes (Other)
  Sender: FDA-Public Use
  Company Number: FR-ROCHE-595815

PATIENT
  Sex: Male

DRUGS (1)
  1. RIVOTRIL [Suspect]
     Indication: PRODUCT USED FOR UNKNOWN INDICATION
     Route: 065

REACTIONS (4)
  - ACCIDENTAL EXPOSURE [None]
  - HYPERSOMNIA [None]
  - POISONING DELIBERATE [None]
  - SOMNOLENCE [None]
